FAERS Safety Report 20856318 (Version 1)
Quarter: 2022Q2

REPORT INFORMATION
  Report Type: Spontaneous
  Country: US (occurrence: US)
  Receive Date: 20220520
  Receipt Date: 20220520
  Transmission Date: 20220721
  Serious: No
  Sender: FDA-Public Use
  Company Number: US-SA-SAC20220509001993

PATIENT
  Sex: Female

DRUGS (4)
  1. DUPIXENT [Suspect]
     Active Substance: DUPILUMAB
     Indication: Dermatitis atopic
     Dosage: 300 MG, QOW
     Route: 058
     Dates: start: 20210723
  2. BLACK COHOSH [Concomitant]
     Active Substance: BLACK COHOSH
     Dosage: 160 MG
  3. ESTROGEL [Concomitant]
     Active Substance: ESTRADIOL
  4. GINKGO BILOBA [GINKGO BILOBA LEAF] [Concomitant]

REACTIONS (2)
  - Memory impairment [Unknown]
  - Product dose omission issue [Unknown]
